FAERS Safety Report 7154993-2 (Version None)
Quarter: 2010Q4

REPORT INFORMATION
  Report Type: 
  Country: None (occurrence: None)
  Receive Date: 20101214
  Receipt Date: 20091119
  Transmission Date: 20110411
  Serious: No
  Sender: FDA-Public Use
  Company Number: US-AMGEN-KDL375757

PATIENT

DRUGS (27)
  1. ENBREL [Suspect]
     Indication: PRODUCT USED FOR UNKNOWN INDICATION
     Dosage: 50 MG, QWK
     Route: 058
  2. UNSPECIFIED OPHTHALMIC PREPARATION [Concomitant]
     Dosage: UNK UNK, UNK
  3. DOCUSATE SODIUM [Concomitant]
  4. MULTI-VITAMINS [Concomitant]
  5. MAGNESIUM [Concomitant]
  6. ALBUTEROL INHALER [Concomitant]
  7. IRON AND VITAMIN C [Concomitant]
  8. MONTELUKAST [Concomitant]
     Dosage: 10 MG, UNK
  9. VENLAFAXINE HCL [Concomitant]
     Dosage: 75 MG, UNK
  10. TRAMADOL HYDROCHLORIDE [Concomitant]
     Dosage: 50 MG, UNK
  11. FLUCONAZOLE [Concomitant]
     Dosage: 100 MG, UNK
  12. CETIRIZINE HYDROCHLORIDE [Concomitant]
     Dosage: 10 MG, UNK
  13. ACETAMINOPHEN AND HYDROCODONE BITARTRATE [Concomitant]
     Dosage: UNK UNK, UNK
  14. CYCLOBENZAPRINE [Concomitant]
     Dosage: 10 MG, UNK
  15. SIMVASTATIN [Concomitant]
     Dosage: 20 MG, UNK
  16. FLUTICASONE/SALMETEROL [Concomitant]
  17. OMEPRAZOLE [Concomitant]
     Dosage: 40 MG, UNK
  18. ERGOCALCIFEROL [Concomitant]
     Dosage: UNK UNK, UNK
  19. METOPROLOL TARTRATE [Concomitant]
     Dosage: 25 MG, UNK
  20. MELOXICAM [Concomitant]
     Dosage: 15 MG, UNK
  21. ZINC [Concomitant]
     Dosage: 50 MG, UNK
  22. ASCORBIC ACID [Concomitant]
     Dosage: 500 MG, UNK
  23. CALCIUM CITRATE [Concomitant]
     Dosage: UNK UNK, UNK
  24. SENNA [Concomitant]
     Dosage: 8.6 MG, UNK
  25. LEVOCARNITINE [Concomitant]
     Dosage: 500 MG, UNK
  26. UNSPECIFIED MEDICATION [Concomitant]
     Dosage: 4 MG, UNK
  27. FISH OIL [Concomitant]
     Dosage: 300 MG, UNK

REACTIONS (1)
  - RASH PRURITIC [None]
